FAERS Safety Report 5236966-X (Version None)
Quarter: 2007Q1

REPORT INFORMATION
  Report Type: 
  Country: None (occurrence: None)
  Receive Date: 20070213
  Receipt Date: 20070131
  Transmission Date: 20070707
  Serious: Yes (Hospitalization, Other)
  Sender: FDA-Public Use
  Company Number: PHEH2006US14919

PATIENT
  Age: 74 Year
  Sex: Female

DRUGS (4)
  1. FORADIL [Suspect]
     Dosage: UNK, UNK
     Dates: start: 20030101, end: 20060901
  2. ALBUTEROL [Concomitant]
  3. BENADRYL [Concomitant]
  4. SINGULAIR [Concomitant]

REACTIONS (10)
  - ARRHYTHMIA [None]
  - ASTHMA [None]
  - COMPUTERISED TOMOGRAM ABNORMAL [None]
  - COUGH DECREASED [None]
  - DYSPNOEA [None]
  - EMOTIONAL DISTRESS [None]
  - INFECTION [None]
  - LUNG DISORDER [None]
  - MALAISE [None]
  - MUSCLE DISORDER [None]
